FAERS Safety Report 8460123-7 (Version None)
Quarter: 2012Q2

REPORT INFORMATION
  Report Type: 
  Country: None (occurrence: None)
  Receive Date: 20120622
  Receipt Date: 20120618
  Transmission Date: 20120825
  Serious: No
  Sender: FDA-Public Use
  Company Number: US-PFIZER INC-2011249477

PATIENT
  Sex: Male
  Weight: 34.014 kg

DRUGS (2)
  1. GENOTROPIN [Suspect]
     Dosage: 1.2 MG, DAILY
     Dates: end: 20120601
  2. GENOTROPIN [Suspect]
     Indication: GROWTH HORMONE DEFICIENCY
     Dosage: 1.2 MG, DAILY
     Dates: start: 20110101, end: 20110101

REACTIONS (1)
  - HEADACHE [None]
